FAERS Safety Report 9710519 (Version 2)
Quarter: 2013Q4

REPORT INFORMATION
  Report Type: Spontaneous
  Country: US (occurrence: US)
  Receive Date: 20131126
  Receipt Date: 20131126
  Transmission Date: 20140711
  Serious: No
  Sender: FDA-Public Use
  Company Number: US-BRISTOL-MYERS SQUIBB COMPANY-18852871

PATIENT
  Age: 51 Year
  Sex: Female
  Weight: 92.06 kg

DRUGS (4)
  1. BYETTA [Suspect]
     Indication: TYPE 2 DIABETES MELLITUS
     Dosage: DOSE INCREASED TO 10MCG
     Dates: start: 201303
  2. METFORMIN HCL [Suspect]
  3. AMARYL [Concomitant]
  4. LANTUS [Concomitant]

REACTIONS (4)
  - Blood glucose increased [Recovering/Resolving]
  - Decreased appetite [Unknown]
  - Weight decreased [Not Recovered/Not Resolved]
  - Nausea [Unknown]
